FAERS Safety Report 11929645 (Version 1)
Quarter: 2016Q1

REPORT INFORMATION
  Report Type: Spontaneous
  Country: US (occurrence: None)
  Receive Date: 20160119
  Receipt Date: 20160119
  Transmission Date: 20160526
  Serious: No
  Sender: FDA-Public Use
  Company Number: None

PATIENT
  Age: 48 Year
  Sex: Female
  Weight: 95.26 kg

DRUGS (13)
  1. PAXIL [Suspect]
     Active Substance: PAROXETINE HYDROCHLORIDE
     Indication: DEPRESSION
     Dosage: 1 PILL A DAY MORNING
     Dates: start: 1995
  2. LORAZEPAM. [Concomitant]
     Active Substance: LORAZEPAM
  3. ZOLOFT [Concomitant]
     Active Substance: SERTRALINE HYDROCHLORIDE
  4. AMLODIPINE [Concomitant]
     Active Substance: AMLODIPINE BESYLATE
  5. B-100 COMPLEX [Concomitant]
     Active Substance: DEXPANTHENOL\NIACINAMIDE\PYRIDOXINE HYDROCHLORIDE\RIBOFLAVIN 5^-PHOSPHATE SODIUM\THIAMINE HYDROCHLORIDE
  6. NEURONTIN [Concomitant]
     Active Substance: GABAPENTIN
  7. TUMS [Concomitant]
     Active Substance: CALCIUM CARBONATE
  8. LEVEMIR [Concomitant]
     Active Substance: INSULIN DETEMIR
  9. METOPROLOL. [Concomitant]
     Active Substance: METOPROLOL
  10. GLIPIZIDE XL [Concomitant]
     Active Substance: GLIPIZIDE
  11. LOSARTAN PT [Concomitant]
  12. CRESTOR [Concomitant]
     Active Substance: ROSUVASTATIN CALCIUM
  13. CINNAMON. [Concomitant]
     Active Substance: CINNAMON

REACTIONS (1)
  - Libido decreased [None]
